FAERS Safety Report 10250087 (Version 1)
Quarter: 2014Q2

REPORT INFORMATION
  Report Type: Spontaneous
  Country: US (occurrence: US)
  Receive Date: 20140620
  Receipt Date: 20140620
  Transmission Date: 20141212
  Serious: No
  Sender: FDA-Public Use
  Company Number: US-BRISTOL-MYERS SQUIBB COMPANY-20655262

PATIENT
  Age: 86 Year
  Sex: Male
  Weight: 80.27 kg

DRUGS (7)
  1. ELIQUIS [Suspect]
     Indication: ATRIAL FIBRILLATION
     Dosage: DOSE REDUCED TO 2.5 MG.HALF TAB TWICE A DAY.?LOT NUM: 3B, 7623UA OR OA/RA.
     Dates: start: 20140408
  2. ASPIRIN [Concomitant]
  3. BETHANECHOL CHLORIDE [Concomitant]
  4. KEPPRA [Concomitant]
  5. METOPROLOL TARTRATE [Concomitant]
  6. ZOCOR [Concomitant]
  7. SYNTHROID [Concomitant]

REACTIONS (6)
  - Contusion [Unknown]
  - Fatigue [Unknown]
  - Ocular hyperaemia [Unknown]
  - Weight decreased [Unknown]
  - Decreased appetite [Unknown]
  - Wrong technique in drug usage process [Unknown]
